FAERS Safety Report 7326675-5 (Version None)
Quarter: 2011Q1

REPORT INFORMATION
  Report Type: 
  Country: None (occurrence: None)
  Receive Date: 20110302
  Receipt Date: 20110225
  Transmission Date: 20110831
  Serious: Yes (Life-Threatening, Hospitalization, Other)
  Sender: FDA-Public Use
  Company Number: GXKR2011DE00913

PATIENT
  Sex: Male

DRUGS (2)
  1. GINGIUM INTENS [Suspect]
     Indication: TINNITUS
     Dosage: 120 MG, QD
     Route: 048
     Dates: start: 20091101, end: 20100101
  2. ASS 1A PHARMA [Suspect]
     Indication: PRODUCT USED FOR UNKNOWN INDICATION
     Dosage: 100 MG, QD
     Route: 048
     Dates: start: 20090901, end: 20100601

REACTIONS (2)
  - HAEMORRHAGIC STROKE [None]
  - ANEURYSM [None]
